FAERS Safety Report 15785375 (Version 3)
Quarter: 2019Q1

REPORT INFORMATION
  Report Type: Report from Study
  Country: US (occurrence: US)
  Receive Date: 20190103
  Receipt Date: 20190215
  Transmission Date: 20190417
  Serious: Yes (Death, Other)
  Sender: FDA-Public Use
  Company Number: US-REGENERON PHARMACEUTICALS, INC.-2018-47405

PATIENT

DRUGS (6)
  1. EYLEA [Suspect]
     Active Substance: AFLIBERCEPT
     Dosage: UNK
     Dates: start: 20170817, end: 20170817
  2. EYLEA [Suspect]
     Active Substance: AFLIBERCEPT
     Indication: DIABETIC RETINOPATHY
     Dosage: UNK
     Dates: start: 20170413, end: 20170421
  3. EYLEA [Suspect]
     Active Substance: AFLIBERCEPT
     Indication: MACULAR OEDEMA
     Dosage: UNK
     Dates: start: 20170425, end: 20170425
  4. EYLEA [Suspect]
     Active Substance: AFLIBERCEPT
     Dosage: UNK
     Dates: start: 20170804, end: 20170804
  5. EYLEA [Suspect]
     Active Substance: AFLIBERCEPT
     Dosage: UNK
     Dates: start: 20171116, end: 20171116
  6. EYLEA [Suspect]
     Active Substance: AFLIBERCEPT
     Dosage: UNK
     Dates: start: 20171121, end: 20171121

REACTIONS (1)
  - Death [Fatal]

NARRATIVE: CASE EVENT DATE: 20180311
